FAERS Safety Report 17256817 (Version 1)
Quarter: 2020Q1

REPORT INFORMATION
  Report Type: Spontaneous
  Country: NL (occurrence: NL)
  Receive Date: 20200110
  Receipt Date: 20200110
  Transmission Date: 20200409
  Serious: Yes (Hospitalization)
  Sender: FDA-Public Use
  Company Number: NL-MYLANLABS-2020M1003130

PATIENT
  Age: 3 Decade
  Sex: Female

DRUGS (8)
  1. DIAZEPAM. [Suspect]
     Active Substance: DIAZEPAM
     Dosage: THE DOSE WAS FURTHER TAPERED DOWN IN ONE AND A HALF WEEK
     Route: 048
  2. SODIUM OXYBATE. [Suspect]
     Active Substance: SODIUM OXYBATE
     Dosage: THE DOSE WAS TITRATED TO A DOSAGE OF 1950MG/2 HOURS
     Route: 065
  3. DIAZEPAM. [Suspect]
     Active Substance: DIAZEPAM
     Indication: WITHDRAWAL SYNDROME
     Dosage: UNK
     Route: 048
  4. DIAZEPAM. [Suspect]
     Active Substance: DIAZEPAM
     Dosage: THE DOSAGE WAS TAPERED DOWN FROM TOTAL DOSE OF 15MG FOLLOWING REMISSION OF WITHDRAWAL SYMPTOMS
     Route: 048
  5. TEMAZEPAM. [Suspect]
     Active Substance: TEMAZEPAM
     Indication: WITHDRAWAL SYNDROME
     Dosage: FEW TABLETS
     Route: 065
  6. BACLOFEN. [Suspect]
     Active Substance: BACLOFEN
     Indication: WITHDRAWAL SYNDROME
     Dosage: FEW TABLETS
     Route: 065
  7. SODIUM OXYBATE. [Suspect]
     Active Substance: SODIUM OXYBATE
     Indication: WITHDRAWAL SYNDROME
     Dosage: 1050 MILLIGRAM
     Route: 065
  8. MIRTAZAPINE. [Suspect]
     Active Substance: MIRTAZAPINE
     Indication: INITIAL INSOMNIA
     Dosage: 15 MILLIGRAM
     Route: 065

REACTIONS (3)
  - Maternal exposure during pregnancy [Recovered/Resolved]
  - Rebound effect [Recovered/Resolved]
  - Normal newborn [Recovered/Resolved]
